FAERS Safety Report 6289224-9 (Version None)
Quarter: 2009Q3

REPORT INFORMATION
  Report Type: 
  Country: None (occurrence: None)
  Receive Date: 20090729
  Receipt Date: 20090729
  Transmission Date: 20100115
  Serious: Yes (Other)
  Sender: FDA-Public Use
  Company Number: None

PATIENT
  Age: 55 Year
  Sex: Female
  Weight: 58.0604 kg

DRUGS (1)
  1. VITAMIN D [Suspect]
     Indication: VITAMIN D DECREASED
     Dosage: 1 SOFTGEL ONCE A WEEK PO
     Route: 048
     Dates: start: 20090612, end: 20090620

REACTIONS (3)
  - AUTOIMMUNE DISORDER [None]
  - RASH GENERALISED [None]
  - RASH PRURITIC [None]
